FAERS Safety Report 7049163-2 (Version None)
Quarter: 2010Q4

REPORT INFORMATION
  Report Type: 
  Country: None (occurrence: None)
  Receive Date: 20101018
  Receipt Date: 20101004
  Transmission Date: 20110411
  Serious: Yes (Hospitalization, Other)
  Sender: FDA-Public Use
  Company Number: PHHY2010BR66988

PATIENT
  Sex: Female

DRUGS (1)
  1. DIOVAN AMLO FIX [Suspect]
     Route: 048

REACTIONS (3)
  - ANGIOPATHY [None]
  - HAEMOGLOBIN DECREASED [None]
  - LEG AMPUTATION [None]
